FAERS Safety Report 8801197 (Version 1)
Quarter: 2012Q4

REPORT INFORMATION
  Report Type: 
  Country: US (occurrence: US)
  Receive Date: 20120920
  Receipt Date: 20120920
  Transmission Date: 20130627
  Serious: Yes (Life-Threatening, Hospitalization)
  Sender: FDA-Public Use
  Company Number: US-ROCHE-1127306

PATIENT
  Age: 83 Year
  Sex: Male
  Weight: 40.86 kg

DRUGS (1)
  1. XELODA [Suspect]
     Indication: COLON CANCER
     Route: 048
     Dates: start: 20120716

REACTIONS (3)
  - Renal disorder [Unknown]
  - Fatigue [Unknown]
  - Weight decreased [Unknown]
